FAERS Safety Report 26071529 (Version 1)
Quarter: 2025Q4

REPORT INFORMATION
  Report Type: Spontaneous
  Country: US (occurrence: US)
  Receive Date: 20251120
  Receipt Date: 20251120
  Transmission Date: 20260118
  Serious: No
  Sender: MERCK SHARP & DOHME LLC
  Company Number: US-009507513-2342160

PATIENT
  Sex: Male

DRUGS (5)
  1. SOTATERCEPT [Suspect]
     Active Substance: SOTATERCEPT
     Dates: start: 20250917
  2. SOTATERCEPT [Suspect]
     Active Substance: SOTATERCEPT
  3. SOTATERCEPT [Suspect]
     Active Substance: SOTATERCEPT
  4. SOTATERCEPT [Suspect]
     Active Substance: SOTATERCEPT
  5. TYVASO [Suspect]
     Active Substance: TREPROSTINIL
     Indication: Pulmonary arterial hypertension
     Route: 055
     Dates: start: 202502

REACTIONS (3)
  - Haemoglobin increased [Recovered/Resolved]
  - Haematocrit increased [Unknown]
  - Red blood cell count increased [Unknown]

NARRATIVE: CASE EVENT DATE: 20250101
